FAERS Safety Report 5639648-5 (Version None)
Quarter: 2008Q1

REPORT INFORMATION
  Report Type: 
  Country: None (occurrence: None)
  Receive Date: 20080226
  Receipt Date: 20080212
  Transmission Date: 20080703
  Serious: Yes (Hospitalization)
  Sender: FDA-Public Use
  Company Number: FR-BAYER-200813530GPV

PATIENT
  Age: 55 Year
  Sex: Female

DRUGS (4)
  1. CAMPATH [Suspect]
     Indication: CHRONIC LYMPHOCYTIC LEUKAEMIA
     Route: 042
     Dates: start: 20070701, end: 20070918
  2. GRANOCYTE [Concomitant]
     Indication: COLONY STIMULATING FACTOR PROPHYLAXIS
     Route: 042
     Dates: start: 20070701
  3. BACTRIM [Concomitant]
     Route: 048
     Dates: start: 20070701
  4. VALACYCLOVIR [Concomitant]
     Route: 048
     Dates: start: 20070701

REACTIONS (2)
  - AGRANULOCYTOSIS [None]
  - LEUKOPENIA [None]
